FAERS Safety Report 9460687 (Version 2)
Quarter: 2013Q3

REPORT INFORMATION
  Report Type: Spontaneous
  Country: AU (occurrence: None)
  Receive Date: 20130813
  Receipt Date: 20130820
  Transmission Date: 20140515
  Serious: Yes (Hospitalization, Disabling)
  Sender: FDA-Public Use
  Company Number: AUR-APL-2013-06659

PATIENT
  Age: 88 Year
  Sex: Female

DRUGS (12)
  1. RAMIPRIL [Suspect]
     Indication: PRODUCT USED FOR UNKNOWN INDICATION
     Route: 048
     Dates: start: 20120626
  2. CLOPIDOGREL [Suspect]
     Dates: start: 20120628
  3. SPIRONOLACTONE [Suspect]
     Route: 048
     Dates: start: 20130304
  4. SALBUTAMOL [Suspect]
     Dosage: 1200 MCG, 1 D, RESPIRATORY
     Route: 055
     Dates: start: 20100902
  5. FUROSEMIDE [Suspect]
     Route: 048
     Dates: start: 20120628
  6. PARACETAMOL [Suspect]
     Route: 048
     Dates: start: 20121030
  7. TEMAZEPAM [Suspect]
     Dosage: 10 MG AS REQUIRED, ORAL
     Route: 048
     Dates: start: 20110408
  8. GLYCERYL TRINITRATE [Suspect]
     Route: 061
     Dates: start: 20120628
  9. SYMBICORT [Suspect]
     Dosage: 200/6 MCG TWICE DAILY, RESPIRATORY
     Route: 055
     Dates: start: 20101124
  10. TERBUTALINE [Suspect]
     Route: 055
     Dates: start: 20100902
  11. BUPRENORPHINE [Suspect]
     Dosage: 0.7143 MCG (5 MCG, 1 N 1 )
     Route: 061
     Dates: start: 20130414
  12. ENDONE [Suspect]
     Dates: start: 20130308

REACTIONS (2)
  - Angioedema [None]
  - Deafness bilateral [None]
